FAERS Safety Report 4417067-7 (Version None)
Quarter: 2004Q3

REPORT INFORMATION
  Report Type: 
  Country: None (occurrence: None)
  Receive Date: 20040806
  Receipt Date: 20040707
  Transmission Date: 20050211
  Serious: Yes (Hospitalization)
  Sender: FDA-Public Use
  Company Number: US-BRISTOL-MYERS SQUIBB COMPANY-12633434

PATIENT
  Age: 48 Year
  Sex: Female
  Weight: 66 kg

DRUGS (3)
  1. TAXOL [Suspect]
     Indication: LARYNGEAL CANCER
     Dosage: DOSING: 01-, 07-, 14-, AND 28-JUN
     Route: 042
     Dates: start: 20040614, end: 20040614
  2. CARBOPLATIN [Suspect]
     Indication: LARYNGEAL CANCER
     Dosage: DOSING: 01-, 07-, 14-, AND 28-JUN
     Route: 042
     Dates: start: 20040614, end: 20040614
  3. RADIOTHERAPY [Suspect]
     Indication: LARYNGEAL CANCER
     Dosage: NEXT DOSE 28JUN04

REACTIONS (5)
  - BLOOD CULTURE POSITIVE [None]
  - DEHYDRATION [None]
  - DYSPHAGIA [None]
  - HYPOTENSION [None]
  - VOMITING [None]
